FAERS Safety Report 7310249-6 (Version None)
Quarter: 2011Q1

REPORT INFORMATION
  Report Type: 
  Country: None (occurrence: None)
  Receive Date: 20110224
  Receipt Date: 20110219
  Transmission Date: 20110831
  Serious: No
  Sender: FDA-Public Use
  Company Number: US-PFIZER INC-2011036819

PATIENT
  Sex: Male
  Weight: 72.5 kg

DRUGS (1)
  1. CHANTIX [Suspect]
     Indication: SMOKING CESSATION THERAPY
     Dosage: 0.5 MG, 1X/DAY
     Route: 048
     Dates: start: 20110201

REACTIONS (3)
  - ABDOMINAL PAIN UPPER [None]
  - MEMORY IMPAIRMENT [None]
  - THINKING ABNORMAL [None]
